FAERS Safety Report 7429599-8 (Version None)
Quarter: 2011Q2

REPORT INFORMATION
  Report Type: 
  Country: None (occurrence: None)
  Receive Date: 20110421
  Receipt Date: 20110414
  Transmission Date: 20111010
  Serious: Yes (Other)
  Sender: FDA-Public Use
  Company Number: B0706757A

PATIENT
  Sex: Male

DRUGS (4)
  1. ALLEGRA [Concomitant]
     Dosage: 120MG PER DAY
     Route: 048
     Dates: start: 20110305
  2. CHINESE MEDICINE [Concomitant]
     Indication: MENIERE'S DISEASE
     Dosage: 7.5MG PER DAY
     Route: 048
  3. ALLERMIST [Suspect]
     Route: 045
     Dates: start: 20110305
  4. CHINESE MEDICINE [Concomitant]
     Dosage: 9MG PER DAY
     Route: 048

REACTIONS (5)
  - DYSPNOEA [None]
  - PERIPHERAL COLDNESS [None]
  - VISION BLURRED [None]
  - ASPHYXIA [None]
  - PALPITATIONS [None]
